FAERS Safety Report 17059569 (Version 1)
Quarter: 2019Q4

REPORT INFORMATION
  Report Type: Spontaneous
  Country: US (occurrence: US)
  Receive Date: 20191121
  Receipt Date: 20191121
  Transmission Date: 20200122
  Serious: Yes (Other)
  Sender: FDA-Public Use
  Company Number: None

PATIENT
  Age: 73 Year
  Sex: Female

DRUGS (17)
  1. HYDRALAZINE [Concomitant]
     Active Substance: HYDRALAZINE HYDROCHLORIDE
  2. HYDROCODONE-ACETAMINOPHEN [Concomitant]
     Active Substance: ACETAMINOPHEN\HYDROCODONE
  3. SULFAMETHOXAZOLE-TRIMETORPIM [Concomitant]
  4. FLUTICASONE PROPIONATE. [Concomitant]
     Active Substance: FLUTICASONE PROPIONATE
  5. PRAVASTATIN. [Concomitant]
     Active Substance: PRAVASTATIN
  6. PREDNISONE. [Concomitant]
     Active Substance: PREDNISONE
  7. VITAMIN D3 [Concomitant]
     Active Substance: CHOLECALCIFEROL
  8. ISOSORIDE MONONITRATE ER [Concomitant]
  9. NITROGLICERIN [Concomitant]
     Active Substance: NITROGLYCERIN
  10. OYSTER SHELL CALCIUM [Concomitant]
     Active Substance: CALCIUM
  11. CARVEDILOL. [Concomitant]
     Active Substance: CARVEDILOL
  12. OMEPRAZOLE. [Concomitant]
     Active Substance: OMEPRAZOLE
  13. NOXAFIL [Concomitant]
     Active Substance: POSACONAZOLE
  14. ONDANSETRON [Concomitant]
     Active Substance: ONDANSETRON
  15. MYCOPHENOLATE MOFETIL. [Suspect]
     Active Substance: MYCOPHENOLATE MOFETIL
     Indication: LUNG TRANSPLANT
     Route: 048
     Dates: start: 20150731, end: 20190630
  16. TACROLIMUS. [Concomitant]
     Active Substance: TACROLIMUS
  17. VALGANCICLOVIR. [Concomitant]
     Active Substance: VALGANCICLOVIR

REACTIONS (3)
  - Jaw disorder [None]
  - Therapy cessation [None]
  - Bone cancer [None]

NARRATIVE: CASE EVENT DATE: 20190829
